FAERS Safety Report 5162727-6 (Version None)
Quarter: 2006Q4

REPORT INFORMATION
  Report Type: 
  Country: None (occurrence: None)
  Receive Date: 20061201
  Receipt Date: 20060629
  Transmission Date: 20070319
  Serious: No
  Sender: FDA-Public Use
  Company Number: 2006PV015347

PATIENT
  Age: 58 Year
  Sex: Female

DRUGS (7)
  1. AUGMENTIN XR [Suspect]
     Indication: BRONCHITIS
     Dosage: 875MG TWICE PER DAY
     Route: 048
     Dates: start: 20060530, end: 20060607
  2. BYETTA [Suspect]
     Dosage: 5MCG TWICE PER DAY
     Route: 058
  3. ROCEPHIN [Suspect]
     Indication: BRONCHITIS
     Dosage: 1G UNKNOWN
     Route: 030
     Dates: start: 20060530
  4. ZELNORM [Concomitant]
     Dates: start: 20040101
  5. VICODIN [Concomitant]
  6. PROMETHAZINE W/ CODEINE [Concomitant]
     Dates: start: 20060530
  7. PHENERGAN [Concomitant]
     Dates: start: 20060602

REACTIONS (5)
  - DIZZINESS [None]
  - ERUCTATION [None]
  - FREQUENT BOWEL MOVEMENTS [None]
  - HEADACHE [None]
  - NAUSEA [None]
